FAERS Safety Report 17886739 (Version 5)
Quarter: 2022Q1

REPORT INFORMATION
  Report Type: Report from Study
  Country: DE (occurrence: DE)
  Receive Date: 20200611
  Receipt Date: 20220222
  Transmission Date: 20220424
  Serious: No
  Sender: FDA-Public Use
  Company Number: DE-002147023-NVSC2020DE107195

PATIENT
  Sex: Female
  Weight: 56 kg

DRUGS (3)
  1. ERENUMAB [Suspect]
     Active Substance: ERENUMAB
     Indication: Migraine
     Dosage: 70 MILLIGRAM
     Route: 065
     Dates: start: 20200309, end: 20200406
  2. PROGESTERONE [Concomitant]
     Active Substance: PROGESTERONE
     Indication: Menopausal symptoms
     Dosage: 100 MG, QD
     Route: 050
     Dates: start: 201001
  3. ESTRADIOL [Concomitant]
     Active Substance: ESTRADIOL
     Indication: Menopausal symptoms
     Dosage: 0.6 MILLIGRAM, QD (DERMAL)
     Route: 050
     Dates: start: 201001

REACTIONS (4)
  - Abdominal pain upper [Recovered/Resolved]
  - Gastrointestinal motility disorder [Recovered/Resolved]
  - Dyschezia [Recovered/Resolved]
  - Constipation [Recovered/Resolved]

NARRATIVE: CASE EVENT DATE: 20200316
